FAERS Safety Report 19462549 (Version 1)
Quarter: 2021Q2

REPORT INFORMATION
  Report Type: Spontaneous
  Country: RO (occurrence: RO)
  Receive Date: 20210625
  Receipt Date: 20210625
  Transmission Date: 20210717
  Serious: Yes (Other)
  Sender: FDA-Public Use
  Company Number: RO-AMGEN-ROUSP2021097307

PATIENT
  Age: 66 Year

DRUGS (7)
  1. VECTIBIX [Suspect]
     Active Substance: PANITUMUMAB
     Indication: ADENOCARCINOMA OF COLON
     Dosage: UNK UNK, CYCLICAL (6 CYCLES)
     Route: 065
     Dates: start: 20200123, end: 20200623
  2. VECTIBIX [Suspect]
     Active Substance: PANITUMUMAB
     Dosage: UNK UNK, CYCLICAL (6 CYCLES)
     Route: 065
     Dates: start: 202007, end: 202011
  3. FOLINIC ACID [Concomitant]
     Active Substance: LEUCOVORIN
     Indication: ADENOCARCINOMA OF COLON
     Dosage: UNK UNK, CYCLICAL (16 CYCLES)
     Dates: start: 20200123, end: 202102
  4. 5 FU [Concomitant]
     Active Substance: FLUOROURACIL
     Indication: ADENOCARCINOMA OF COLON
     Dosage: UNK UNK, CYCLICAL (16 CYCLES)
     Dates: start: 20200123, end: 202102
  5. DOXYCYCLINE. [Concomitant]
     Active Substance: DOXYCYCLINE
     Dosage: 100 MILLIGRAM, BID
     Dates: start: 202001
  6. VECTIBIX [Suspect]
     Active Substance: PANITUMUMAB
     Dosage: UNK UNK, CYCLICAL (4 CYCLES)
     Route: 065
     Dates: start: 202011, end: 202102
  7. OXALIPLATIN. [Concomitant]
     Active Substance: OXALIPLATIN
     Indication: ADENOCARCINOMA OF COLON
     Dosage: UNK UNK, CYCLICAL (16 CYCLES)
     Dates: start: 20200123, end: 202102

REACTIONS (6)
  - Polyneuropathy [Unknown]
  - Therapy partial responder [Unknown]
  - Rash [Unknown]
  - Folliculitis [Unknown]
  - Staphylococcal skin infection [Unknown]
  - Rash pustular [Unknown]

NARRATIVE: CASE EVENT DATE: 202007
